FAERS Safety Report 5971495-7 (Version None)
Quarter: 2008Q4

REPORT INFORMATION
  Report Type: 
  Country: None (occurrence: None)
  Receive Date: 20081201
  Receipt Date: 20081119
  Transmission Date: 20090506
  Serious: Yes (Other)
  Sender: FDA-Public Use
  Company Number: US-WYE-H06901708

PATIENT
  Sex: Male
  Weight: 108.96 kg

DRUGS (13)
  1. TORISEL [Suspect]
     Indication: METASTATIC RENAL CELL CARCINOMA
     Dosage: 25 MG
     Route: 042
     Dates: start: 20081110
  2. METOPROLOL TARTRATE [Concomitant]
  3. PROTONIX [Concomitant]
     Dates: start: 20080501
  4. FLOMAX [Concomitant]
     Indication: BENIGN PROSTATIC HYPERPLASIA
     Dosage: NOT PROVIDED
  5. ADVAIR HFA [Concomitant]
     Dosage: PRN
  6. MARINOL [Concomitant]
     Dosage: NOT PROVIDED
  7. COLACE [Concomitant]
     Dosage: 100 MG PRN
  8. LOVENOX [Concomitant]
     Indication: THROMBOSIS PROPHYLAXIS
     Dosage: NOT PROVIDED
  9. VANCOMYCIN [Concomitant]
  10. LEXAPRO [Concomitant]
  11. VICODIN [Concomitant]
     Dosage: 500 MG EVERY FOUR HOURS PRN
  12. DILTIAZEM HCL [Concomitant]
     Dosage: 240 MG
  13. SIMVASTATIN [Concomitant]

REACTIONS (2)
  - HAEMATURIA [None]
  - URINARY BLADDER HAEMORRHAGE [None]
